FAERS Safety Report 25531652 (Version 1)
Quarter: 2025Q3

REPORT INFORMATION
  Report Type: Report from Study
  Country: CA (occurrence: CA)
  Receive Date: 20250709
  Receipt Date: 20250709
  Transmission Date: 20251020
  Serious: Yes (Other)
  Sender: ABBVIE
  Company Number: CA-ABBVIE-6358763

PATIENT
  Sex: Female

DRUGS (1)
  1. SKYRIZI [Suspect]
     Active Substance: RISANKIZUMAB-RZAA
     Indication: Crohn^s disease
     Route: 058

REACTIONS (7)
  - Stoma creation [Unknown]
  - Incisional hernia [Not Recovered/Not Resolved]
  - Fatigue [Unknown]
  - Eczema [Unknown]
  - Night sweats [Unknown]
  - Osteoarthritis [Unknown]
  - Frequent bowel movements [Unknown]
